FAERS Safety Report 7470863-4 (Version None)
Quarter: 2011Q2

REPORT INFORMATION
  Report Type: 
  Country: None (occurrence: None)
  Receive Date: 20110510
  Receipt Date: 20110505
  Transmission Date: 20111010
  Serious: Yes (Hospitalization, Other)
  Sender: FDA-Public Use
  Company Number: FR-PFIZER INC-2011096428

PATIENT
  Age: 56 Year
  Sex: Female

DRUGS (7)
  1. CYCLOPHOSPHAMIDE [Suspect]
     Indication: BREAST CANCER
     Dosage: 820 MG, CYCLIC
     Route: 042
     Dates: start: 20101220, end: 20110113
  2. OLMESARTAN MEDOXOMIL [Concomitant]
  3. EPIRUBICIN HYDROCHLORIDE [Suspect]
     Indication: BREAST CANCER
     Dosage: 170 MG, CYCLIC
     Route: 042
     Dates: start: 20101220, end: 20110113
  4. ATARAX [Concomitant]
     Dosage: 0.5 DF, 1X/DAY
  5. POLLEN EXTRACT NOS [Concomitant]
     Dosage: 1 DF, 1X/DAY
  6. ZELITREX [Concomitant]
     Dosage: UNK
  7. FLUOROURACIL [Suspect]
     Indication: BREAST CANCER
     Dosage: 160 MG, CYCLIC
     Route: 042
     Dates: start: 20101220, end: 20110113

REACTIONS (3)
  - CEREBROVASCULAR ACCIDENT [None]
  - MUCOSAL INFLAMMATION [None]
  - PARAESTHESIA [None]
